FAERS Safety Report 18842475 (Version 2)
Quarter: 2021Q2

REPORT INFORMATION
  Report Type: Spontaneous
  Country: DE (occurrence: DE)
  Receive Date: 20210204
  Receipt Date: 20210414
  Transmission Date: 20210717
  Serious: Yes (Life-Threatening, Hospitalization, Other)
  Sender: FDA-Public Use
  Company Number: DE-REGENERON PHARMACEUTICALS, INC.-2021-18831

PATIENT

DRUGS (5)
  1. LIBTAYO [Suspect]
     Active Substance: CEMIPLIMAB-RWLC
     Dosage: 350 UNK
     Route: 042
     Dates: start: 20210204
  2. LIBTAYO [Suspect]
     Active Substance: CEMIPLIMAB-RWLC
     Indication: PRODUCT USED FOR UNKNOWN INDICATION
     Dosage: 350 MG
     Route: 042
     Dates: start: 20200901
  3. LIBTAYO [Suspect]
     Active Substance: CEMIPLIMAB-RWLC
     Dosage: 350 MG
     Dates: start: 20201218
  4. LIBTAYO [Suspect]
     Active Substance: CEMIPLIMAB-RWLC
     Dosage: 350 MG
     Route: 042
     Dates: start: 20210114
  5. LIBTAYO [Suspect]
     Active Substance: CEMIPLIMAB-RWLC
     Dosage: 350 MG
     Route: 042
     Dates: start: 20201106

REACTIONS (10)
  - Leukopenia [Unknown]
  - Hypertension [Unknown]
  - Palpitations [Unknown]
  - Optic neuritis [Unknown]
  - Optic neuritis [Recovered/Resolved]
  - Immune-mediated lung disease [Recovered/Resolved]
  - Unevaluable event [Unknown]
  - Infusion related reaction [Unknown]
  - Myositis [Unknown]
  - Pneumonitis [Unknown]

NARRATIVE: CASE EVENT DATE: 20200906
